FAERS Safety Report 7808885-3 (Version None)
Quarter: 2011Q4

REPORT INFORMATION
  Report Type: 
  Country: None (occurrence: None)
  Receive Date: 20111012
  Receipt Date: 20111012
  Transmission Date: 20120403
  Serious: Yes (Hospitalization)
  Sender: FDA-Public Use
  Company Number: PHHO2007US19565

PATIENT
  Sex: Female
  Weight: 83 kg

DRUGS (1)
  1. GILENYA [Suspect]
     Indication: MULTIPLE SCLEROSIS
     Dosage: 0.5 MG, UNK
     Route: 048
     Dates: start: 20070925

REACTIONS (15)
  - VULVOVAGINAL SWELLING [None]
  - NAUSEA [None]
  - LABILE BLOOD PRESSURE [None]
  - VULVOVAGINITIS [None]
  - EXTRAPYRAMIDAL DISORDER [None]
  - CHEST PAIN [None]
  - PAIN [None]
  - MUSCLE SPASMS [None]
  - ANXIETY [None]
  - ERYTHEMA [None]
  - HYPOTHYROIDISM [None]
  - HYPERTENSION [None]
  - ENTEROCOCCAL INFECTION [None]
  - KLEBSIELLA INFECTION [None]
  - NEURALGIA [None]
